FAERS Safety Report 5945984-5 (Version None)
Quarter: 2008Q4

REPORT INFORMATION
  Report Type: 
  Country: None (occurrence: None)
  Receive Date: 20081110
  Receipt Date: 20081103
  Transmission Date: 20090506
  Serious: Yes (Hospitalization)
  Sender: FDA-Public Use
  Company Number: FR-PURDUE-GBR_2008_0004570

PATIENT
  Sex: Female
  Weight: 101 kg

DRUGS (6)
  1. OXYNORM CAPSULES 5 MG [Suspect]
     Indication: CANCER PAIN
     Dosage: 5 MG, Q4H
     Route: 048
     Dates: start: 20081031, end: 20081103
  2. OXYNORM CAPSULES 5 MG [Suspect]
     Dosage: 5 MG, TID
     Route: 048
     Dates: start: 20081029, end: 20081031
  3. DURAGESIC-100 [Concomitant]
     Indication: CANCER PAIN
     Dosage: 37 MCG, Q1H
     Route: 062
     Dates: start: 20081029
  4. DURAGESIC-100 [Concomitant]
     Dosage: 25 MCG, Q1H
     Route: 062
  5. MORPHINE [Concomitant]
     Indication: PAIN
     Dosage: 20 MG, DAILY
     Route: 065
     Dates: end: 20081027
  6. MORPHINE [Concomitant]
     Dosage: 10 MG, DAILY
     Route: 065

REACTIONS (4)
  - ASTHENIA [None]
  - CIRCULATORY COLLAPSE [None]
  - CONSTIPATION [None]
  - RESPIRATORY DISTRESS [None]
